FAERS Safety Report 7465867-1 (Version None)
Quarter: 2011Q2

REPORT INFORMATION
  Report Type: 
  Country: None (occurrence: None)
  Receive Date: 20110509
  Receipt Date: 20100422
  Transmission Date: 20111010
  Serious: No
  Sender: FDA-Public Use
  Company Number: US-ALEXION-A201000461

PATIENT
  Sex: Male

DRUGS (4)
  1. FOLIC ACID [Concomitant]
     Dosage: 1 MG, QD
  2. SOLIRIS [Suspect]
     Indication: PAROXYSMAL NOCTURNAL HAEMOGLOBINURIA
     Dosage: UNK
  3. PREDNISONE [Concomitant]
     Dosage: 15 MG, BID
  4. LEVOTHROID [Concomitant]
     Dosage: 0.125 MG, QD

REACTIONS (10)
  - SKIN DISCOLOURATION [None]
  - DIZZINESS [None]
  - ERYTHEMA [None]
  - CONSTIPATION [None]
  - VISION BLURRED [None]
  - BACK PAIN [None]
  - FATIGUE [None]
  - ABDOMINAL PAIN [None]
  - OEDEMA PERIPHERAL [None]
  - TOOTH ABSCESS [None]
